FAERS Safety Report 18017005 (Version 2)
Quarter: 2020Q4

REPORT INFORMATION
  Report Type: Spontaneous
  Country: DE (occurrence: DE)
  Receive Date: 20200713
  Receipt Date: 20201107
  Transmission Date: 20210113
  Serious: Yes (Life-Threatening, Hospitalization, Disabling, Other)
  Sender: FDA-Public Use
  Company Number: NVSC2020DE195307

PATIENT
  Sex: Female

DRUGS (2)
  1. GILENYA [Suspect]
     Active Substance: FINGOLIMOD HYDROCHLORIDE
     Indication: RELAPSING-REMITTING MULTIPLE SCLEROSIS
     Dosage: 0.5 MG, QD
     Route: 048
     Dates: start: 201901, end: 20200705
  2. VIT D [Concomitant]
     Active Substance: VITAMIN D NOS
     Indication: VITAMIN D DEFICIENCY
     Dosage: UNK
     Route: 048
     Dates: start: 20200705

REACTIONS (5)
  - Pyrexia [Recovered/Resolved]
  - Disturbance in attention [Unknown]
  - Herpes simplex encephalitis [Unknown]
  - Mental disorder [Recovering/Resolving]
  - Lymphopenia [Unknown]

NARRATIVE: CASE EVENT DATE: 2020
